FAERS Safety Report 6898579-3 (Version None)
Quarter: 2010Q3

REPORT INFORMATION
  Report Type: 
  Country: None (occurrence: None)
  Receive Date: 20100802
  Receipt Date: 20071105
  Transmission Date: 20110219
  Serious: No
  Sender: FDA-Public Use
  Company Number: US-PFIZER INC-2007093300

PATIENT
  Age: 87 Year
  Sex: Female
  Weight: 70.3 kg

DRUGS (1)
  1. LYRICA [Suspect]
     Indication: ARTHRALGIA
     Dosage: 100MG  EVERY DAY
     Dates: start: 20071001, end: 20071102

REACTIONS (1)
  - OEDEMA PERIPHERAL [None]
